FAERS Safety Report 17701534 (Version 1)
Quarter: 2020Q2

REPORT INFORMATION
  Report Type: Spontaneous
  Country: HU (occurrence: HU)
  Receive Date: 20200424
  Receipt Date: 20200424
  Transmission Date: 20200714
  Serious: Yes (Other)
  Sender: FDA-Public Use
  Company Number: ALC2020HU002833

PATIENT

DRUGS (10)
  1. FORTUM [CEFTAZIDIME PENTAHYDRATE] [Concomitant]
     Active Substance: CEFTAZIDIME
     Indication: PRODUCT USED FOR UNKNOWN INDICATION
     Dosage: UNK
     Route: 065
  2. CICLOPLEGICEDOL [Concomitant]
     Indication: PRODUCT USED FOR UNKNOWN INDICATION
     Dosage: 3 DRP, QD
     Route: 065
  3. MAXIDEX [Suspect]
     Active Substance: DEXAMETHASONE
     Dosage: 5 DF
     Route: 065
  4. DEXAMETHASONE 21 [Suspect]
     Active Substance: DEXAMETHASONE SODIUM PHOSPHATE
     Indication: OEDEMA
     Dosage: FOR BOTH EYES
     Route: 057
  5. OFTAQUIX [Suspect]
     Active Substance: LEVOFLOXACIN
     Indication: OEDEMA
     Dosage: 5 DF
     Route: 061
  6. ATROPINE. [Suspect]
     Active Substance: ATROPINE
     Indication: OEDEMA
     Dosage: 3 X 1 DRP
     Route: 065
  7. OFTAQUIX [Suspect]
     Active Substance: LEVOFLOXACIN
     Dosage: 5 X 1 DRP
     Route: 065
  8. MAXIDEX [Suspect]
     Active Substance: DEXAMETHASONE
     Indication: OEDEMA
     Dosage: 1 DRP, QH
     Route: 065
  9. CIPROFLOXACIN. [Suspect]
     Active Substance: CIPROFLOXACIN
     Indication: PRODUCT USED FOR UNKNOWN INDICATION
     Dosage: 3 X 400 MG, QD
     Route: 065
  10. CIPROFLOXACIN. [Suspect]
     Active Substance: CIPROFLOXACIN
     Dosage: 2 DF, QD (2X1 TABLET)
     Route: 048

REACTIONS (3)
  - Endophthalmitis [Unknown]
  - Hypopyon [Not Recovered/Not Resolved]
  - Choroidal detachment [Not Recovered/Not Resolved]
